FAERS Safety Report 8592172-2 (Version None)
Quarter: 2012Q3

REPORT INFORMATION
  Report Type: 
  Country: None (occurrence: None)
  Receive Date: 20120814
  Receipt Date: 20120803
  Transmission Date: 20120928
  Serious: Yes (Hospitalization)
  Sender: FDA-Public Use
  Company Number: US-ELI_LILLY_AND_COMPANY-US201207003941

PATIENT
  Age: 58 Year
  Sex: Male

DRUGS (3)
  1. CYMBALTA [Suspect]
     Dosage: 60 MG, UNK
     Dates: start: 20120618, end: 20120701
  2. CYMBALTA [Suspect]
     Indication: BACK PAIN
     Dosage: 30 MG, UNK
     Dates: start: 20120611, end: 20120617
  3. CYMBALTA [Suspect]
     Dosage: 90 MG, UNK
     Dates: start: 20120702

REACTIONS (4)
  - FALL [None]
  - MUSCULAR WEAKNESS [None]
  - SOMNOLENCE [None]
  - ANKLE FRACTURE [None]
